FAERS Safety Report 4370855-8 (Version None)
Quarter: 2004Q2

REPORT INFORMATION
  Report Type: 
  Country: None (occurrence: None)
  Receive Date: 20040526
  Receipt Date: 20040514
  Transmission Date: 20050107
  Serious: Yes (Disabling)
  Sender: FDA-Public Use
  Company Number: 2004-116007-NL

PATIENT
  Age: 17 Year
  Sex: Female

DRUGS (3)
  1. MIRTAZAPINE [Suspect]
     Indication: ANXIETY
     Dosage: 45 MG/ 30 MG/ 15 MG
     Route: 048
  2. MIRTAZAPINE [Suspect]
     Indication: DEPRESSION
     Dosage: 45 MG/ 30 MG/ 15 MG
     Route: 048
  3. ANTIPSYCHOTIC BENZODIAZEPINE [Concomitant]

REACTIONS (2)
  - AKATHISIA [None]
  - RESTLESS LEGS SYNDROME [None]
